FAERS Safety Report 6277727-2 (Version None)
Quarter: 2009Q3

REPORT INFORMATION
  Report Type: 
  Country: None (occurrence: None)
  Receive Date: 20090722
  Receipt Date: 20090714
  Transmission Date: 20100115
  Serious: Yes (Hospitalization)
  Sender: FDA-Public Use
  Company Number: A0797856A

PATIENT
  Age: 41 Year
  Sex: Male

DRUGS (1)
  1. ROSIGLITAZONE [Suspect]
     Indication: TYPE 2 DIABETES MELLITUS
     Route: 048

REACTIONS (7)
  - ASTHENIA [None]
  - CARDIAC DISORDER [None]
  - CONDITION AGGRAVATED [None]
  - INJURY [None]
  - LOSS OF EMPLOYMENT [None]
  - MYOCARDIAL INFARCTION [None]
  - SELF ESTEEM DECREASED [None]
